FAERS Safety Report 4598537-8 (Version None)
Quarter: 2005Q1

REPORT INFORMATION
  Report Type: 
  Country: None (occurrence: None)
  Receive Date: 20050304
  Receipt Date: 20040130
  Transmission Date: 20050727
  Serious: Yes (Life-Threatening, Hospitalization)
  Sender: FDA-Public Use
  Company Number: FR-ROCHE-357956

PATIENT
  Age: 63 Year
  Sex: Female
  Weight: 59 kg

DRUGS (6)
  1. PEG-INTERFERON ALFA 2A (RO 25-8310) [Suspect]
     Route: 058
     Dates: start: 20030612
  2. RIBAVIRIN [Suspect]
     Route: 048
     Dates: start: 20030625
  3. PROGRAF [Concomitant]
     Route: 048
     Dates: start: 20040303
  4. GRANOCYTE [Concomitant]
  5. ARANESP [Concomitant]
  6. CORTANCYL [Concomitant]

REACTIONS (7)
  - BRONCHOPULMONARY ASPERGILLOSIS [None]
  - DISEASE RECURRENCE [None]
  - HEPATITIS [None]
  - LIVER TRANSPLANT REJECTION [None]
  - LUNG DISORDER [None]
  - PNEUMONIA STAPHYLOCOCCAL [None]
  - TRANSPLANT REJECTION [None]
